FAERS Safety Report 6925136-2 (Version None)
Quarter: 2010Q3

REPORT INFORMATION
  Report Type: 
  Country: None (occurrence: None)
  Receive Date: 20100816
  Receipt Date: 20100715
  Transmission Date: 20110219
  Serious: No
  Sender: FDA-Public Use
  Company Number: US-BAYER-201018160BCC

PATIENT
  Age: 73 Year
  Sex: Female
  Weight: 64 kg

DRUGS (10)
  1. ALEVE (CAPLET) [Suspect]
     Indication: ARTHRITIS
     Dosage: TOTAL DAILY DOSE: 660 MG  UNIT DOSE: 220 MG
     Route: 048
     Dates: start: 20091101
  2. ALEVE (CAPLET) [Suspect]
     Dosage: TOTAL DAILY DOSE: 660 MG  UNIT DOSE: 220 MG
     Route: 048
     Dates: start: 20091101
  3. ASPIRIN [Suspect]
     Indication: ARTHRITIS
     Dosage: TOTAL DAILY DOSE: 975 MG  UNIT DOSE: 325 MG
     Route: 048
     Dates: end: 20100101
  4. LEVOXYL [Concomitant]
     Route: 065
  5. SAVELLA [Concomitant]
     Route: 065
     Dates: start: 20100501
  6. PEN K ANTIBIOTIC [Concomitant]
     Route: 065
  7. EQUATE STOOL SOFTENER [Concomitant]
     Route: 065
     Dates: start: 20100619
  8. GLUCOSAMINE MSM [Concomitant]
     Route: 065
  9. PURIFIED CHONDROITIN SULPHATE [Concomitant]
     Route: 065
  10. HERBAL TEA [Concomitant]
     Indication: INCONTINENCE
     Route: 065
     Dates: end: 20100601

REACTIONS (2)
  - ARTHRITIS [None]
  - DIZZINESS [None]
